FAERS Safety Report 12764494 (Version 1)
Quarter: 2016Q3

REPORT INFORMATION
  Report Type: Spontaneous
  Country: US (occurrence: US)
  Receive Date: 20160920
  Receipt Date: 20160920
  Transmission Date: 20161109
  Serious: No
  Sender: FDA-Public Use
  Company Number: US-ALLERGAN-1522671US

PATIENT
  Age: 67 Year
  Sex: Female
  Weight: 65.76 kg

DRUGS (3)
  1. LASTACAFT [Suspect]
     Active Substance: ALCAFTADINE
     Indication: TEARFULNESS
     Dosage: UNK
     Route: 047
     Dates: start: 201510, end: 20151030
  2. LASTACAFT [Suspect]
     Active Substance: ALCAFTADINE
     Indication: EYE PRURITUS
  3. LASTACAFT [Suspect]
     Active Substance: ALCAFTADINE
     Indication: OCULAR HYPERAEMIA

REACTIONS (4)
  - Eye pain [Not Recovered/Not Resolved]
  - Eye swelling [Not Recovered/Not Resolved]
  - Ocular hyperaemia [Not Recovered/Not Resolved]
  - Lacrimation increased [Not Recovered/Not Resolved]

NARRATIVE: CASE EVENT DATE: 201510
